FAERS Safety Report 10248780 (Version 8)
Quarter: 2014Q4

REPORT INFORMATION
  Report Type: Spontaneous
  Country: IT (occurrence: IT)
  Receive Date: 20140620
  Receipt Date: 20141028
  Transmission Date: 20150528
  Serious: Yes (Hospitalization)
  Sender: FDA-Public Use
  Company Number: IT-RANBAXY-2014RR-82645

PATIENT
  Age: 61 Year
  Sex: Male

DRUGS (8)
  1. SIMVASTATIN. [Suspect]
     Active Substance: SIMVASTATIN
     Indication: INTENTIONAL SELF-INJURY
     Dosage: 280 MG COMPLETE
     Route: 048
     Dates: start: 20140423, end: 20140423
  2. DENIBAN [Suspect]
     Active Substance: AMISULPRIDE
     Indication: INTENTIONAL SELF-INJURY
     Dosage: 500 MG COMPLETE
     Route: 048
     Dates: start: 20140423, end: 20140423
  3. LANSOPRAZOLE. [Suspect]
     Active Substance: LANSOPRAZOLE
     Indication: INTENTIONAL SELF-INJURY
     Dosage: 105 MG COMPLETE
     Route: 048
     Dates: start: 20140423, end: 20140423
  4. CITALOPRAM [Suspect]
     Active Substance: CITALOPRAM HYDROBROMIDE
     Indication: INTENTIONAL SELF-INJURY
     Dosage: 280 MG COMPLETE
     Route: 048
     Dates: start: 20140423, end: 20140423
  5. ZEFFIX [Suspect]
     Active Substance: LAMIVUDINE
     Indication: INTENTIONAL SELF-INJURY
     Dosage: 140 MG COMPLETE
     Route: 048
     Dates: start: 20140423, end: 20140423
  6. ZOLPIDEM [Suspect]
     Active Substance: ZOLPIDEM\ZOLPIDEM TARTRATE
     Indication: INTENTIONAL SELF-INJURY
     Dosage: 50 MG TOTAL
     Route: 048
     Dates: start: 20140423, end: 20140423
  7. VASORETIC [Suspect]
     Active Substance: ENALAPRIL MALEATE\HYDROCHLOROTHIAZIDE
     Indication: INTENTIONAL SELF-INJURY
     Dosage: 227.5 MG COMPLETE
     Route: 048
     Dates: start: 20140423, end: 20140423
  8. METFORMIN [Suspect]
     Active Substance: METFORMIN HYDROCHLORIDE
     Indication: INTENTIONAL SELF-INJURY
     Dosage: 35000 MG COMPLETE
     Route: 048
     Dates: start: 20140423, end: 20140423

REACTIONS (5)
  - Depressed level of consciousness [Recovered/Resolved]
  - Intentional self-injury [Recovered/Resolved]
  - Conduction disorder [Recovered/Resolved]
  - Metabolic acidosis [Recovered/Resolved]
  - Hypotension [Recovered/Resolved]

NARRATIVE: CASE EVENT DATE: 20140423
